FAERS Safety Report 14630428 (Version 1)
Quarter: 2018Q1

REPORT INFORMATION
  Report Type: Spontaneous
  Country: US (occurrence: US)
  Receive Date: 20180313
  Receipt Date: 20180313
  Transmission Date: 20180509
  Serious: No
  Sender: FDA-Public Use
  Company Number: None

PATIENT
  Age: 55 Year
  Sex: Female

DRUGS (1)
  1. HUMIRA [Suspect]
     Active Substance: ADALIMUMAB
     Route: 058
     Dates: start: 20180118, end: 20180216

REACTIONS (4)
  - Injection site swelling [None]
  - Pruritus generalised [None]
  - Dizziness [None]
  - Injection site erythema [None]

NARRATIVE: CASE EVENT DATE: 20180216
